FAERS Safety Report 4807108-7 (Version None)
Quarter: 2005Q4

REPORT INFORMATION
  Report Type: 
  Country: None (occurrence: None)
  Receive Date: 20051024
  Receipt Date: 20050906
  Transmission Date: 20060501
  Serious: Yes (Disabling)
  Sender: FDA-Public Use
  Company Number: AT-GLAXOSMITHKLINE-B0393326A

PATIENT
  Age: 24 Year
  Sex: Male

DRUGS (1)
  1. MALARONE [Suspect]
     Indication: MALARIA PROPHYLAXIS
     Dosage: 1TAB PER DAY
     Route: 065

REACTIONS (7)
  - ASTHENIA [None]
  - CONSTIPATION [None]
  - DENGUE FEVER [None]
  - DIARRHOEA [None]
  - FOOD POISONING [None]
  - MALARIA [None]
  - PYREXIA [None]
